FAERS Safety Report 8862189 (Version 1)
Quarter: 2012Q4

REPORT INFORMATION
  Report Type: 
  Country: US (occurrence: US)
  Receive Date: 20121026
  Receipt Date: 20121026
  Transmission Date: 20130627
  Serious: No
  Sender: FDA-Public Use
  Company Number: US-TEVA-366770USA

PATIENT
  Sex: Female
  Weight: 101.7 kg

DRUGS (5)
  1. NUVIGIL [Suspect]
     Indication: NARCOLEPSY
     Dosage: QAM
     Route: 048
     Dates: start: 201208
  2. PAXIL [Concomitant]
     Indication: ANXIETY
     Dosage: QPM
     Route: 048
  3. PAXIL [Concomitant]
     Indication: DEPRESSION
  4. KLONOPIN [Concomitant]
     Indication: ANXIETY
     Dosage: .5 Milligram Daily;
     Route: 048
  5. LAMICTAL [Concomitant]
     Indication: MIGRAINE
     Dosage: QPM
     Route: 048

REACTIONS (1)
  - Glossitis [Recovered/Resolved]
